FAERS Safety Report 4771956-2 (Version None)
Quarter: 2005Q3

REPORT INFORMATION
  Report Type: 
  Country: None (occurrence: None)
  Receive Date: 20050916
  Receipt Date: 20050908
  Transmission Date: 20060218
  Serious: Yes (Other)
  Sender: FDA-Public Use
  Company Number: PHBS2005JP13146

PATIENT

DRUGS (1)
  1. STARSIS [Suspect]

REACTIONS (1)
  - PEMPHIGUS [None]
